FAERS Safety Report 4709571-9 (Version None)
Quarter: 2005Q3

REPORT INFORMATION
  Report Type: 
  Country: None (occurrence: None)
  Receive Date: 20050707
  Receipt Date: 20050615
  Transmission Date: 20060218
  Serious: Yes (Death)
  Sender: FDA-Public Use
  Company Number: US_0506119644

PATIENT
  Age: 37 Year

DRUGS (1)
  1. ZYPREXA [Suspect]
     Dates: start: 19990101, end: 20030701

REACTIONS (1)
  - DIABETES MELLITUS [None]
